FAERS Safety Report 5479950-3 (Version None)
Quarter: 2007Q4

REPORT INFORMATION
  Report Type: 
  Country: None (occurrence: None)
  Receive Date: 20071008
  Receipt Date: 20071002
  Transmission Date: 20080405
  Serious: Yes (Other)
  Sender: FDA-Public Use
  Company Number: JP-ABBOTT-07P-087-0419195-00

PATIENT
  Sex: Male
  Weight: 2.66 kg

DRUGS (9)
  1. SEVOFLURANE [Suspect]
     Indication: MAINTENANCE OF ANAESTHESIA
     Route: 055
  2. ALBUMIN (HUMAN) [Suspect]
     Indication: HYPOTENSION
     Dosage: VOLUME LOADING, TOTAL 60 ML OF 5%
     Route: 042
  3. FENTANYL [Concomitant]
     Indication: INDUCTION OF ANAESTHESIA
     Route: 042
  4. PANCURONIUM [Concomitant]
     Indication: INDUCTION OF ANAESTHESIA
     Route: 042
  5. OXYGEN [Concomitant]
     Indication: INDUCTION OF ANAESTHESIA
     Route: 055
  6. OXYGEN [Concomitant]
     Indication: MAINTENANCE OF ANAESTHESIA
     Route: 055
  7. OXYGEN [Concomitant]
     Indication: HYPOXIA
     Route: 055
  8. FLUIDS [Concomitant]
     Indication: DRUG USE FOR UNKNOWN INDICATION
     Dosage: 10 ML OF INITIAL FLUID
  9. FLUIDS [Concomitant]
     Dosage: 40 ML OF MAINTENANCE FLUID

REACTIONS (2)
  - BLOOD PRESSURE SYSTOLIC DECREASED [None]
  - PULMONARY CONGESTION [None]
